FAERS Safety Report 6738812-1 (Version None)
Quarter: 2010Q2

REPORT INFORMATION
  Report Type: 
  Country: None (occurrence: None)
  Receive Date: 20100524
  Receipt Date: 20100413
  Transmission Date: 20101027
  Serious: Yes (Death, Other)
  Sender: FDA-Public Use
  Company Number: US-BAXTER-2009BH013269

PATIENT
  Age: 56 Year
  Sex: Male

DRUGS (36)
  1. HEPARIN SODIUM INJECTION [Suspect]
     Indication: HAEMODIALYSIS
     Route: 065
     Dates: start: 20070801
  2. HEPARIN SODIUM INJECTION [Suspect]
     Route: 065
     Dates: start: 20071009, end: 20071011
  3. HEPARIN SODIUM INJECTION [Suspect]
     Route: 042
     Dates: start: 20071012, end: 20071014
  4. CATAPRES                                /USA/ [Concomitant]
     Indication: DRUG USE FOR UNKNOWN INDICATION
     Route: 065
  5. VASOTEC [Concomitant]
     Indication: DRUG USE FOR UNKNOWN INDICATION
     Route: 065
  6. CALAN [Concomitant]
     Indication: DRUG USE FOR UNKNOWN INDICATION
     Route: 065
  7. AMLODIPINE [Concomitant]
     Indication: DRUG USE FOR UNKNOWN INDICATION
     Route: 065
  8. DOXAZOSIN MESILATE [Concomitant]
     Indication: DRUG USE FOR UNKNOWN INDICATION
     Route: 065
  9. APRESOLINE [Concomitant]
     Indication: DRUG USE FOR UNKNOWN INDICATION
     Route: 065
  10. LISINOPRIL [Concomitant]
     Indication: DRUG USE FOR UNKNOWN INDICATION
     Route: 065
  11. WARFARIN SODIUM [Concomitant]
     Indication: DRUG USE FOR UNKNOWN INDICATION
     Route: 065
  12. NOVOLIN N [Concomitant]
     Indication: DRUG USE FOR UNKNOWN INDICATION
     Route: 065
  13. EPOGEN [Concomitant]
     Indication: DRUG USE FOR UNKNOWN INDICATION
     Route: 065
  14. TAGAMET [Concomitant]
     Indication: DRUG USE FOR UNKNOWN INDICATION
     Route: 065
  15. LOPRESSOR [Concomitant]
     Indication: DRUG USE FOR UNKNOWN INDICATION
     Route: 065
  16. LASIX [Concomitant]
     Indication: DRUG USE FOR UNKNOWN INDICATION
     Route: 065
  17. COLACE [Concomitant]
     Indication: DRUG USE FOR UNKNOWN INDICATION
     Route: 065
  18. FOLIC ACID [Concomitant]
     Indication: DRUG USE FOR UNKNOWN INDICATION
     Route: 065
  19. FERROUS SULFATE TAB [Concomitant]
     Indication: DRUG USE FOR UNKNOWN INDICATION
     Route: 065
  20. PHOSLO [Concomitant]
     Indication: DRUG USE FOR UNKNOWN INDICATION
     Route: 065
  21. SPIRONOLACTONE [Concomitant]
     Indication: DRUG USE FOR UNKNOWN INDICATION
     Route: 065
  22. MULTI-VITAMINS [Concomitant]
     Indication: DRUG USE FOR UNKNOWN INDICATION
     Route: 065
  23. LEVAQUIN [Concomitant]
     Indication: DRUG USE FOR UNKNOWN INDICATION
     Route: 065
     Dates: start: 20070716
  24. AUGMENTIN '125' [Concomitant]
     Indication: DRUG USE FOR UNKNOWN INDICATION
     Route: 065
     Dates: end: 20070909
  25. CIPRO [Concomitant]
     Indication: DRUG USE FOR UNKNOWN INDICATION
     Route: 065
     Dates: start: 20070501
  26. ANCEF [Concomitant]
     Indication: DRUG USE FOR UNKNOWN INDICATION
     Route: 065
     Dates: start: 20070712
  27. GARAMYCIN [Concomitant]
     Indication: DRUG USE FOR UNKNOWN INDICATION
     Route: 065
     Dates: start: 20070724
  28. CIPRO [Concomitant]
     Route: 065
  29. FLAGYL [Concomitant]
     Indication: DRUG USE FOR UNKNOWN INDICATION
     Route: 065
  30. ARANESP [Concomitant]
     Indication: DRUG USE FOR UNKNOWN INDICATION
     Route: 065
  31. INTROPIN [Concomitant]
     Indication: DRUG USE FOR UNKNOWN INDICATION
     Route: 065
  32. HYPERTONIC SOLUTIONS [Concomitant]
     Indication: DRUG USE FOR UNKNOWN INDICATION
     Route: 065
  33. DEXTROSE [Concomitant]
     Indication: DRUG USE FOR UNKNOWN INDICATION
     Route: 065
  34. NEXIUM [Concomitant]
     Indication: DRUG USE FOR UNKNOWN INDICATION
     Route: 065
  35. INTROPIN [Concomitant]
     Route: 065
  36. HEPARIN [Concomitant]
     Indication: DRUG USE FOR UNKNOWN INDICATION
     Route: 065
     Dates: start: 20070409, end: 20070418

REACTIONS (26)
  - ABDOMINAL PAIN [None]
  - ANAEMIA [None]
  - ANTICOAGULATION DRUG LEVEL ABOVE THERAPEUTIC [None]
  - ASCITES [None]
  - BLOOD PRESSURE IMMEASURABLE [None]
  - CARDIAC ARREST [None]
  - DEATH [None]
  - DECREASED ACTIVITY [None]
  - DIARRHOEA [None]
  - DYSPNOEA [None]
  - FEELING COLD [None]
  - GASTROENTERITIS [None]
  - GENERALISED OEDEMA [None]
  - HEART RATE IRREGULAR [None]
  - HYPOTENSION [None]
  - ILEUS [None]
  - LETHARGY [None]
  - LEUKOCYTOSIS [None]
  - MULTI-ORGAN FAILURE [None]
  - NAUSEA [None]
  - RECTAL HAEMORRHAGE [None]
  - RENAL FAILURE CHRONIC [None]
  - RESPIRATORY DISTRESS [None]
  - RESPIRATORY FAILURE [None]
  - SEPTIC SHOCK [None]
  - VOMITING [None]
